FAERS Safety Report 8515381-7 (Version None)
Quarter: 2012Q3

REPORT INFORMATION
  Report Type: 
  Country: None (occurrence: None)
  Receive Date: 20120717
  Receipt Date: 20120706
  Transmission Date: 20120928
  Serious: Yes (Other)
  Sender: FDA-Public Use
  Company Number: US-ELI_LILLY_AND_COMPANY-US201101003069

PATIENT
  Sex: Female
  Weight: 49.887 kg

DRUGS (5)
  1. FORTEO [Suspect]
     Dosage: 20 UG, QD
     Route: 065
  2. FORTEO [Suspect]
     Dosage: 20 UG, QD
     Route: 065
  3. FORTEO [Suspect]
     Indication: OSTEOPOROSIS
     Dosage: 20 UG, QD
     Route: 065
     Dates: start: 20100101
  4. FORTEO [Suspect]
     Dosage: 20 UG, QD
     Route: 065
  5. FORTEO [Suspect]
     Dosage: 20 UG, QD
     Route: 058

REACTIONS (9)
  - LIMB DEFORMITY [None]
  - GAIT DISTURBANCE [None]
  - ARTHRALGIA [None]
  - TREMOR [None]
  - JOINT INJURY [None]
  - DIZZINESS [None]
  - FALL [None]
  - FACIAL BONES FRACTURE [None]
  - WRIST SURGERY [None]
